FAERS Safety Report 4977903-2 (Version None)
Quarter: 2006Q2

REPORT INFORMATION
  Report Type: 
  Country: None (occurrence: None)
  Receive Date: 20060420
  Receipt Date: 20060105
  Transmission Date: 20061013
  Serious: Yes (Hospitalization, Disabling)
  Sender: FDA-Public Use
  Company Number: US-MERCK-0601USA00874

PATIENT
  Age: 77 Year
  Sex: Female
  Weight: 66 kg

DRUGS (1)
  1. VIOXX [Suspect]
     Indication: THROMBOSIS
     Route: 048
     Dates: start: 20030101, end: 20040930

REACTIONS (5)
  - DEEP VEIN THROMBOSIS [None]
  - DYSSTASIA [None]
  - HIP FRACTURE [None]
  - SHOULDER PAIN [None]
  - VENOUS OCCLUSION [None]
